FAERS Safety Report 8091543-0 (Version None)
Quarter: 2012Q1

REPORT INFORMATION
  Report Type: 
  Country: None (occurrence: None)
  Receive Date: 20120129
  Receipt Date: 20110912
  Transmission Date: 20120608
  Serious: No
  Sender: FDA-Public Use
  Company Number: US-ABBOTT-11P-163-0853769-00

PATIENT
  Sex: Male
  Weight: 64.922 kg

DRUGS (3)
  1. FLEXERIL [Concomitant]
     Indication: MUSCLE SPASMS
     Dates: start: 20110101
  2. HUMIRA [Suspect]
     Indication: RHEUMATOID ARTHRITIS
     Dates: start: 20110701, end: 20110801
  3. HUMIRA [Suspect]
     Dates: start: 20110801

REACTIONS (10)
  - RASH PRURITIC [None]
  - FEELING OF BODY TEMPERATURE CHANGE [None]
  - PSYCHOMOTOR HYPERACTIVITY [None]
  - TOOTHACHE [None]
  - NASOPHARYNGITIS [None]
  - TOOTH INFECTION [None]
  - RASH [None]
  - ANXIETY [None]
  - RASH PAPULAR [None]
  - DYSPNOEA [None]
